FAERS Safety Report 18546331 (Version 1)
Quarter: 2020Q4

REPORT INFORMATION
  Report Type: Report from Study
  Country: US (occurrence: US)
  Receive Date: 20201125
  Receipt Date: 20201125
  Transmission Date: 20210114
  Serious: Yes (Hospitalization, Other)
  Sender: FDA-Public Use
  Company Number: US-TAKEDA-2019TUS018253

PATIENT
  Sex: Male

DRUGS (2)
  1. PONATINIB [Suspect]
     Active Substance: PONATINIB
     Dosage: 15 MILLIGRAM, QD
     Route: 048
  2. PONATINIB [Suspect]
     Active Substance: PONATINIB
     Indication: CHRONIC MYELOID LEUKAEMIA
     Dosage: 15 MILLIGRAM, QD
     Route: 048
     Dates: start: 20180306

REACTIONS (7)
  - White blood cell count abnormal [Unknown]
  - Rash [Unknown]
  - Pneumonia [Unknown]
  - Fatigue [Unknown]
  - Platelet count decreased [Unknown]
  - Product dose omission issue [Unknown]
  - Graft versus host disease in skin [Unknown]
